FAERS Safety Report 13830912 (Version 3)
Quarter: 2017Q4

REPORT INFORMATION
  Report Type: Spontaneous
  Country: US (occurrence: US)
  Receive Date: 20170803
  Receipt Date: 20171226
  Transmission Date: 20180320
  Serious: Yes (Death, Other)
  Sender: FDA-Public Use
  Company Number: US-JNJFOC-20170802661

PATIENT
  Sex: Male

DRUGS (5)
  1. SIMVASTATIN. [Concomitant]
     Active Substance: SIMVASTATIN
  2. TAMSULOSIN [Concomitant]
     Active Substance: TAMSULOSIN
  3. IMBRUVICA [Suspect]
     Active Substance: IBRUTINIB
     Indication: CHRONIC LYMPHOCYTIC LEUKAEMIA
     Route: 048
     Dates: start: 20160609
  4. AMLODIPINE [Concomitant]
     Active Substance: AMLODIPINE BESYLATE
  5. FINASTERIDE. [Concomitant]
     Active Substance: FINASTERIDE

REACTIONS (3)
  - Disease progression [Fatal]
  - Pleural effusion [Recovered/Resolved]
  - Lung disorder [Unknown]
